FAERS Safety Report 21315922 (Version 1)
Quarter: 2022Q3

REPORT INFORMATION
  Report Type: Spontaneous
  Country: FR (occurrence: FR)
  Receive Date: 20220910
  Receipt Date: 20220910
  Transmission Date: 20221027
  Serious: Yes (Hospitalization, Other)
  Sender: FDA-Public Use
  Company Number: None

PATIENT
  Age: 33 Year
  Sex: Female

DRUGS (6)
  1. DIAZEPAM [Suspect]
     Active Substance: DIAZEPAM
     Dosage: AT LEAST 15MG/DAY
     Route: 048
  2. BROMAZEPAM [Suspect]
     Active Substance: BROMAZEPAM
     Route: 048
  3. OXAZEPAM [Suspect]
     Active Substance: OXAZEPAM
     Dosage: 125 MG/J
     Route: 048
  4. DOXYLAMINE SUCCINATE [Suspect]
     Active Substance: DOXYLAMINE SUCCINATE
     Route: 048
  5. IMOVANE [Suspect]
     Active Substance: ZOPICLONE
     Dosage: 1/2 CP/J
     Route: 048
  6. ALCOHOL [Suspect]
     Active Substance: ALCOHOL
     Dosage: UP TO 9 UNITS ONCE A WEEK
     Route: 048

REACTIONS (1)
  - Drug dependence [Not Recovered/Not Resolved]
